FAERS Safety Report 5466511-5 (Version None)
Quarter: 2007Q3

REPORT INFORMATION
  Report Type: 
  Country: None (occurrence: None)
  Receive Date: 20070820
  Receipt Date: 20070607
  Transmission Date: 20080115
  Serious: No
  Sender: FDA-Public Use
  Company Number: WAES 0706USA01331

PATIENT
  Sex: Male

DRUGS (13)
  1. JANUVIA [Suspect]
     Indication: TYPE 2 DIABETES MELLITUS
     Dosage: DAILY/PO
     Route: 048
     Dates: start: 20061227, end: 20070505
  2. CENTRUM SILVER [Concomitant]
  3. HUMALOG [Concomitant]
  4. LANTUS [Concomitant]
  5. LASIX [Concomitant]
  6. LOPID [Concomitant]
  7. NIASPAN [Concomitant]
  8. PLAVIX [Concomitant]
  9. SYNTHROID [Concomitant]
  10. ZOCOR [Concomitant]
  11. LISINOPRIL [Concomitant]
  12. OMEGA-3 MARINE TRIGLYCERIDES [Concomitant]
  13. SELENIUM SULFIDE [Concomitant]

REACTIONS (2)
  - CONSTIPATION [None]
  - WRONG TECHNIQUE IN DRUG USAGE PROCESS [None]
